FAERS Safety Report 23831127 (Version 1)
Quarter: 2024Q2

REPORT INFORMATION
  Report Type: Spontaneous
  Country: US (occurrence: US)
  Receive Date: 20240508
  Receipt Date: 20240508
  Transmission Date: 20240716
  Serious: No
  Sender: FDA-Public Use
  Company Number: US-ELI_LILLY_AND_COMPANY-US202405001507

PATIENT
  Age: 44 Year
  Sex: Female

DRUGS (4)
  1. TRULICITY [Suspect]
     Active Substance: DULAGLUTIDE
     Indication: Diabetes mellitus
     Dosage: 0.75 MG, UNKNOWN
     Route: 058
     Dates: start: 202403
  2. TRULICITY [Suspect]
     Active Substance: DULAGLUTIDE
     Indication: Diabetes mellitus
     Dosage: 0.75 MG, UNKNOWN
     Route: 058
     Dates: start: 202403
  3. TRULICITY [Suspect]
     Active Substance: DULAGLUTIDE
     Indication: Weight decreased
     Dosage: 0.75 MG, UNKNOWN
     Route: 058
  4. TRULICITY [Suspect]
     Active Substance: DULAGLUTIDE
     Indication: Weight decreased
     Dosage: 0.75 MG, UNKNOWN
     Route: 058

REACTIONS (9)
  - Erythema [Not Recovered/Not Resolved]
  - Blood blister [Not Recovered/Not Resolved]
  - Hypersomnia [Recovered/Resolved]
  - Oropharyngeal discomfort [Recovering/Resolving]
  - Cough [Recovering/Resolving]
  - Breast disorder [Not Recovered/Not Resolved]
  - Accidental underdose [Unknown]
  - Injection site pain [Recovered/Resolved]
  - Injection site haemorrhage [Recovered/Resolved]

NARRATIVE: CASE EVENT DATE: 20240430
